FAERS Safety Report 5327251-6 (Version None)
Quarter: 2007Q2

REPORT INFORMATION
  Report Type: 
  Country: None (occurrence: None)
  Receive Date: 20070514
  Receipt Date: 20070427
  Transmission Date: 20071010
  Serious: Yes (Death)
  Sender: FDA-Public Use
  Company Number: 2007BI009501

PATIENT
  Age: 42 Year
  Sex: Male

DRUGS (1)
  1. NATALIZUMAB [Suspect]
     Indication: MULTIPLE SCLEROSIS
     Dosage: 300 MG;QM;IV
     Route: 042
     Dates: start: 20061010, end: 20070328

REACTIONS (3)
  - BEDRIDDEN [None]
  - MULTIPLE SCLEROSIS [None]
  - PNEUMONIA [None]
